FAERS Safety Report 24524663 (Version 4)
Quarter: 2024Q4

REPORT INFORMATION
  Report Type: Report from Study
  Country: CN (occurrence: CN)
  Receive Date: 20241019
  Receipt Date: 20241212
  Transmission Date: 20250115
  Serious: Yes (Hospitalization, Other)
  Sender: ALEXION PHARMACEUTICALS
  Company Number: CN-ASTRAZENECA-202409GLO002456CN

PATIENT
  Age: 77 Year

DRUGS (60)
  1. OLAPARIB [Suspect]
     Active Substance: OLAPARIB
     Indication: Prostate cancer
     Dosage: 150 MILLIGRAM
  2. OLAPARIB [Suspect]
     Active Substance: OLAPARIB
     Dosage: 150 MILLIGRAM
     Route: 048
  3. OLAPARIB [Suspect]
     Active Substance: OLAPARIB
     Dosage: 150 MILLIGRAM
  4. OLAPARIB [Suspect]
     Active Substance: OLAPARIB
     Dosage: 150 MILLIGRAM
     Route: 048
  5. OLAPARIB [Suspect]
     Active Substance: OLAPARIB
     Dosage: 300 MILLIGRAM
  6. OLAPARIB [Suspect]
     Active Substance: OLAPARIB
     Dosage: 300 MILLIGRAM
     Route: 048
  7. OLAPARIB [Suspect]
     Active Substance: OLAPARIB
     Dosage: 300 MILLIGRAM
  8. OLAPARIB [Suspect]
     Active Substance: OLAPARIB
     Dosage: 300 MILLIGRAM
     Route: 048
  9. OLAPARIB [Suspect]
     Active Substance: OLAPARIB
     Dosage: 0 MILLIGRAM
  10. OLAPARIB [Suspect]
     Active Substance: OLAPARIB
     Dosage: 0 MILLIGRAM
     Route: 048
  11. OLAPARIB [Suspect]
     Active Substance: OLAPARIB
     Dosage: 0 MILLIGRAM
  12. OLAPARIB [Suspect]
     Active Substance: OLAPARIB
     Dosage: 0 MILLIGRAM
     Route: 048
  13. DEXAMETHASONE SODIUM PHOSPHATE [Concomitant]
     Active Substance: DEXAMETHASONE SODIUM PHOSPHATE
     Indication: Prophylaxis
     Dosage: UNK
  14. DEXAMETHASONE SODIUM PHOSPHATE [Concomitant]
     Active Substance: DEXAMETHASONE SODIUM PHOSPHATE
     Dosage: UNK
     Route: 051
  15. DEXAMETHASONE SODIUM PHOSPHATE [Concomitant]
     Active Substance: DEXAMETHASONE SODIUM PHOSPHATE
     Dosage: UNK
  16. DEXAMETHASONE SODIUM PHOSPHATE [Concomitant]
     Active Substance: DEXAMETHASONE SODIUM PHOSPHATE
     Dosage: UNK
     Route: 051
  17. ZOLEDRONIC ACID [Concomitant]
     Active Substance: ZOLEDRONIC ACID
     Indication: Prophylaxis
     Dosage: UNK
  18. ZOLEDRONIC ACID [Concomitant]
     Active Substance: ZOLEDRONIC ACID
     Dosage: UNK
     Route: 051
  19. ZOLEDRONIC ACID [Concomitant]
     Active Substance: ZOLEDRONIC ACID
     Dosage: UNK
  20. ZOLEDRONIC ACID [Concomitant]
     Active Substance: ZOLEDRONIC ACID
     Dosage: UNK
     Route: 051
  21. TEPRENONE [Concomitant]
     Active Substance: TEPRENONE
     Indication: Prophylaxis
     Dosage: UNK
     Route: 065
  22. TEPRENONE [Concomitant]
     Active Substance: TEPRENONE
     Dosage: UNK
     Route: 065
  23. TEPRENONE [Concomitant]
     Active Substance: TEPRENONE
     Dosage: UNK
     Route: 065
  24. TEPRENONE [Concomitant]
     Active Substance: TEPRENONE
     Dosage: UNK
     Route: 065
  25. RIVASTIGMINE TARTRATE [Concomitant]
     Active Substance: RIVASTIGMINE TARTRATE
     Indication: Dementia Alzheimer^s type
     Dosage: UNK
     Route: 065
  26. RIVASTIGMINE TARTRATE [Concomitant]
     Active Substance: RIVASTIGMINE TARTRATE
     Dosage: UNK
     Route: 065
  27. RIVASTIGMINE TARTRATE [Concomitant]
     Active Substance: RIVASTIGMINE TARTRATE
     Dosage: UNK
     Route: 065
  28. RIVASTIGMINE TARTRATE [Concomitant]
     Active Substance: RIVASTIGMINE TARTRATE
     Dosage: UNK
     Route: 065
  29. TANDOSPIRONE CITRATE [Concomitant]
     Active Substance: TANDOSPIRONE CITRATE
     Indication: Anxiety
     Dosage: UNK
     Route: 065
  30. TANDOSPIRONE CITRATE [Concomitant]
     Active Substance: TANDOSPIRONE CITRATE
     Dosage: UNK
     Route: 065
  31. TANDOSPIRONE CITRATE [Concomitant]
     Active Substance: TANDOSPIRONE CITRATE
     Dosage: UNK
     Route: 065
  32. TANDOSPIRONE CITRATE [Concomitant]
     Active Substance: TANDOSPIRONE CITRATE
     Dosage: UNK
     Route: 065
  33. Compound xueshuantong capsule ( traditional Chinese medicine ) [Concomitant]
     Indication: Prophylaxis
     Dosage: UNK
     Route: 065
  34. Compound xueshuantong capsule ( traditional Chinese medicine ) [Concomitant]
     Dosage: UNK
     Route: 065
  35. Compound xueshuantong capsule ( traditional Chinese medicine ) [Concomitant]
     Dosage: UNK
     Route: 065
  36. Compound xueshuantong capsule ( traditional Chinese medicine ) [Concomitant]
     Dosage: UNK
     Route: 065
  37. CLOPIDOGREL [Concomitant]
     Active Substance: CLOPIDOGREL BISULFATE
     Indication: Prophylaxis
     Dosage: UNK
     Route: 065
  38. CLOPIDOGREL [Concomitant]
     Active Substance: CLOPIDOGREL BISULFATE
     Dosage: UNK
     Route: 065
  39. CLOPIDOGREL [Concomitant]
     Active Substance: CLOPIDOGREL BISULFATE
     Dosage: UNK
     Route: 065
  40. CLOPIDOGREL [Concomitant]
     Active Substance: CLOPIDOGREL BISULFATE
     Dosage: UNK
     Route: 065
  41. BATILOL [Concomitant]
     Active Substance: BATILOL
     Indication: Prophylaxis
     Dosage: UNK
     Route: 065
  42. BATILOL [Concomitant]
     Active Substance: BATILOL
     Dosage: UNK
     Route: 065
  43. BATILOL [Concomitant]
     Active Substance: BATILOL
     Dosage: UNK
     Route: 065
  44. BATILOL [Concomitant]
     Active Substance: BATILOL
     Dosage: UNK
     Route: 065
  45. BATILOL [Concomitant]
     Active Substance: BATILOL
     Dosage: UNK
     Route: 065
  46. BATILOL [Concomitant]
     Active Substance: BATILOL
     Dosage: UNK
     Route: 065
  47. BATILOL [Concomitant]
     Active Substance: BATILOL
     Dosage: UNK
     Route: 065
  48. BATILOL [Concomitant]
     Active Substance: BATILOL
     Dosage: UNK
     Route: 065
  49. Compound alpha ketoacid [Concomitant]
     Indication: Chronic kidney disease
     Dosage: UNK
     Route: 065
  50. Compound alpha ketoacid [Concomitant]
     Dosage: UNK
     Route: 065
  51. Compound alpha ketoacid [Concomitant]
     Dosage: UNK
     Route: 065
  52. Compound alpha ketoacid [Concomitant]
     Dosage: UNK
     Route: 065
  53. LOXOPROFEN SODIUM [Concomitant]
     Active Substance: LOXOPROFEN SODIUM
     Indication: Hepatic steatosis
     Dosage: UNK
     Route: 065
  54. LOXOPROFEN SODIUM [Concomitant]
     Active Substance: LOXOPROFEN SODIUM
     Dosage: UNK
     Route: 065
  55. LOXOPROFEN SODIUM [Concomitant]
     Active Substance: LOXOPROFEN SODIUM
     Dosage: UNK
     Route: 065
  56. LOXOPROFEN SODIUM [Concomitant]
     Active Substance: LOXOPROFEN SODIUM
     Dosage: UNK
     Route: 065
  57. CEFOPERAZONE SODIUM\SULBACTAM SODIUM [Concomitant]
     Active Substance: CEFOPERAZONE SODIUM\SULBACTAM SODIUM
     Indication: Prophylaxis
     Dosage: UNK
     Route: 065
  58. CEFOPERAZONE SODIUM\SULBACTAM SODIUM [Concomitant]
     Active Substance: CEFOPERAZONE SODIUM\SULBACTAM SODIUM
     Dosage: UNK
     Route: 065
  59. CEFOPERAZONE SODIUM\SULBACTAM SODIUM [Concomitant]
     Active Substance: CEFOPERAZONE SODIUM\SULBACTAM SODIUM
     Dosage: UNK
     Route: 065
  60. CEFOPERAZONE SODIUM\SULBACTAM SODIUM [Concomitant]
     Active Substance: CEFOPERAZONE SODIUM\SULBACTAM SODIUM
     Dosage: UNK
     Route: 065

REACTIONS (2)
  - Myelosuppression [Recovered/Resolved]
  - Hypokalaemia [Recovered/Resolved]
